FAERS Safety Report 6263353-8 (Version None)
Quarter: 2009Q3

REPORT INFORMATION
  Report Type: 
  Country: None (occurrence: None)
  Receive Date: 20090710
  Receipt Date: 20080624
  Transmission Date: 20100115
  Serious: No
  Sender: FDA-Public Use
  Company Number: A0734756A

PATIENT
  Age: 78 Year
  Sex: Female

DRUGS (1)
  1. FLOVENT [Suspect]
     Indication: BRONCHITIS
     Dosage: 1PUFF TWICE PER DAY
     Route: 055
     Dates: start: 20080616

REACTIONS (1)
  - DRUG INEFFECTIVE [None]
